FAERS Safety Report 10727066 (Version 1)
Quarter: 2015Q1

REPORT INFORMATION
  Report Type: Report from Study
  Country: US (occurrence: US)
  Receive Date: 20150121
  Receipt Date: 20150121
  Transmission Date: 20150721
  Serious: Yes (Disabling, Other)
  Sender: FDA-Public Use
  Company Number: US-BMSGILMSD-2015-0132357

PATIENT
  Age: 53 Year
  Sex: Male

DRUGS (1)
  1. EFAVIRENZ/EMTRICITABINE/TENOFOVIR DISOPROXIL FUMARATE [Suspect]
     Active Substance: EFAVIRENZ\EMTRICITABINE\TENOFOVIR DISOPROXIL FUMARATE
     Indication: PRODUCT USED FOR UNKNOWN INDICATION
     Dosage: 1100 MG, UNK
     Route: 048

REACTIONS (5)
  - Hepatitis C [Unknown]
  - Asthenia [Unknown]
  - Diarrhoea [Unknown]
  - Abdominal pain upper [Unknown]
  - Weight decreased [Unknown]
